FAERS Safety Report 9677893 (Version 3)
Quarter: 2014Q1

REPORT INFORMATION
  Report Type: Report from Study
  Country: ES (occurrence: ES)
  Receive Date: 20131108
  Receipt Date: 20140220
  Transmission Date: 20141002
  Serious: Yes (Death, Hospitalization)
  Sender: FDA-Public Use
  Company Number: ES-UCBSA-102118

PATIENT
  Age: 66 Year
  Sex: Female

DRUGS (12)
  1. CERTOLIZUMAB PEGOL [Suspect]
     Indication: RHEUMATOID ARTHRITIS
     Dosage: FOR THE FIRST 3 WEEKS
     Route: 058
     Dates: start: 201304, end: 2013
  2. CERTOLIZUMAB PEGOL [Suspect]
     Indication: RHEUMATOID ARTHRITIS
     Route: 058
     Dates: start: 2013
  3. LEFLUNOMIDE [Concomitant]
     Dosage: UNKNOWN DOSE
     Dates: start: 201302, end: 201306
  4. TORASEMIDE [Concomitant]
     Dosage: UNKNOWN DOSE
  5. DEFLAZACORT [Concomitant]
     Dosage: 22.5 MG/DIA; 3/4 TABELTS DAILY
  6. HYDROXYCHLOROQUINE [Concomitant]
  7. OMEPRAZOLE [Concomitant]
     Dosage: 20 MG/DAY
  8. NAPROXEN [Concomitant]
  9. CYCLOPHOSPHAMIDE [Concomitant]
     Dosage: UNKNOWN DOSE
  10. NORADRENALINE [Concomitant]
     Dosage: UNKNOWN DOSE
  11. PROPOFOL [Concomitant]
     Dosage: UNKNOWN DOSE
  12. FENTANYL [Concomitant]
     Dosage: UNKNOWN DOSE

REACTIONS (1)
  - Non-Hodgkin^s lymphoma [Fatal]
